FAERS Safety Report 24707095 (Version 2)
Quarter: 2025Q3

REPORT INFORMATION
  Report Type: Report from Study
  Country: US (occurrence: US)
  Receive Date: 20241206
  Receipt Date: 20250802
  Transmission Date: 20251020
  Serious: Yes (Other)
  Sender: ALEXION PHARMACEUTICALS
  Company Number: US-AstraZeneca-CH-00758361A

PATIENT
  Age: 75 Year
  Sex: Female

DRUGS (13)
  1. CAPIVASERTIB [Suspect]
     Active Substance: CAPIVASERTIB
     Dosage: 200 MILLIGRAM, BID
  2. CRESTOR [Suspect]
     Active Substance: ROSUVASTATIN CALCIUM
     Dosage: 10 MILLIGRAM, QD
  3. FASLODEX [Suspect]
     Active Substance: FULVESTRANT
     Indication: Product used for unknown indication
  4. FASLODEX [Suspect]
     Active Substance: FULVESTRANT
  5. ACETAMINOPHEN [Concomitant]
     Active Substance: ACETAMINOPHEN
     Dosage: 500 MILLIGRAM, Q6H
     Dates: start: 20240426
  6. CETIRIZINE [Concomitant]
     Active Substance: CETIRIZINE HYDROCHLORIDE
     Dosage: 10 MILLIGRAM, QD
     Dates: start: 20241119
  7. CYMBALTA [Concomitant]
     Active Substance: DULOXETINE HYDROCHLORIDE
     Dosage: 30 MILLIGRAM, QD
     Dates: start: 20240822
  8. LOPERAMIDE [Concomitant]
     Active Substance: LOPERAMIDE
  9. NOVOLOG [Concomitant]
     Active Substance: INSULIN ASPART
     Dosage: 15 MILLILITER, TID
     Dates: start: 20240429
  10. ZOFRAN [Concomitant]
     Active Substance: ONDANSETRON HYDROCHLORIDE
     Dosage: 8 MILLIGRAM, Q8H
     Dates: start: 20240923
  11. COMPAZINE [Concomitant]
     Active Substance: PROCHLORPERAZINE MALEATE
     Dosage: 10 MILLIGRAM, Q6H
     Dates: start: 20240923, end: 20240923
  12. COMPAZINE [Concomitant]
     Active Substance: PROCHLORPERAZINE MALEATE
     Dosage: 10 MILLIGRAM, Q6H
     Dates: start: 20241119
  13. ULTRAM [Concomitant]
     Active Substance: TRAMADOL HYDROCHLORIDE
     Dosage: 50 MILLIGRAM, Q6H
     Dates: start: 20240426

REACTIONS (1)
  - Metastatic neoplasm [Unknown]
